FAERS Safety Report 24110724 (Version 1)
Quarter: 2024Q3

REPORT INFORMATION
  Report Type: Spontaneous
  Country: US (occurrence: None)
  Receive Date: 20240718
  Receipt Date: 20240718
  Transmission Date: 20241017
  Serious: No
  Sender: Public
  Company Number: None

PATIENT
  Sex: Male

DRUGS (1)
  1. SKYRIZI [Suspect]
     Active Substance: RISANKIZUMAB-RZAA
     Indication: Crohn^s disease
     Dosage: OTHER FREQUENCY : EVERY 56 DAYS;?
     Route: 058
     Dates: start: 202405

REACTIONS (5)
  - Psychotic disorder [None]
  - Dry mouth [None]
  - Headache [None]
  - Anxiety [None]
  - Mood altered [None]
